FAERS Safety Report 4626822-X (Version None)
Quarter: 2005Q2

REPORT INFORMATION
  Report Type: 
  Country: None (occurrence: None)
  Receive Date: 20050401
  Receipt Date: 20050401
  Transmission Date: 20051028
  Serious: Yes (Death)
  Sender: FDA-Public Use
  Company Number: None

PATIENT
  Age: 44 Year
  Sex: Male
  Weight: 104.3273 kg

DRUGS (8)
  1. NEURONTIN [Suspect]
     Indication: DEPRESSION
  2. NEURONTIN [Suspect]
     Indication: FIBROMYALGIA
  3. NEURONTIN [Suspect]
     Indication: PAIN
  4. NEURONTIN [Suspect]
     Indication: RESTLESS LEGS SYNDROME
  5. OXYCONTIN [Suspect]
  6. OXYCODONE [Suspect]
  7. EFFEXOR [Suspect]
  8. ALPRAZOLAM [Suspect]

REACTIONS (7)
  - ACCIDENTAL DEATH [None]
  - CIRCULATORY COLLAPSE [None]
  - DEHYDRATION [None]
  - DRUG INTERACTION [None]
  - DRUG TOXICITY [None]
  - INCOHERENT [None]
  - LOSS OF CONSCIOUSNESS [None]
